FAERS Safety Report 4370666-3 (Version None)
Quarter: 2004Q2

REPORT INFORMATION
  Report Type: 
  Country: None (occurrence: None)
  Receive Date: 20040526
  Receipt Date: 20040513
  Transmission Date: 20050107
  Serious: Yes (Death)
  Sender: FDA-Public Use
  Company Number: 2004-BP-03777RA

PATIENT

DRUGS (1)
  1. TIOTROPIUM INHALATION POWDER (KAI) (TIOTROPIUM) [Suspect]

REACTIONS (1)
  - ACUTE MYOCARDIAL INFARCTION [None]
